FAERS Safety Report 8245283-5 (Version None)
Quarter: 2012Q1

REPORT INFORMATION
  Report Type: 
  Country: None (occurrence: None)
  Receive Date: 20120329
  Receipt Date: 20120316
  Transmission Date: 20120608
  Serious: Yes (Death, Disabling)
  Sender: FDA-Public Use
  Company Number: DE-MYLANLABS-2012S1006079

PATIENT
  Age: 3 Year

DRUGS (4)
  1. ETOPOSIDE [Suspect]
     Indication: MEDULLOBLASTOMA
     Dosage: HIT 2000 MET-BIS4 PROTOCOL
     Route: 065
  2. THIOTEPA [Suspect]
     Indication: MEDULLOBLASTOMA
     Dosage: HIT 2000 MET-BIS4 PROTOCOL
     Route: 065
  3. CYCLOPHOSPHAMIDE [Suspect]
     Indication: MEDULLOBLASTOMA
     Dosage: HIT 2000 MET-BIS4 PROTOCOL
     Route: 065
  4. CARBOPLATIN [Suspect]
     Indication: MEDULLOBLASTOMA
     Dosage: HIT 2000 MET-BIS4 PROTOCOL
     Route: 065

REACTIONS (4)
  - RESPIRATORY FAILURE [None]
  - ACUTE RESPIRATORY DISTRESS SYNDROME [None]
  - PNEUMOTHORAX [None]
  - PNEUMOMEDIASTINUM [None]
